FAERS Safety Report 10420925 (Version 1)
Quarter: 2014Q3

REPORT INFORMATION
  Report Type: Spontaneous
  Country: US (occurrence: None)
  Receive Date: 20140714
  Receipt Date: 20140714
  Transmission Date: 20150326
  Serious: No
  Sender: FDA-Public Use
  Company Number: 2014US003187

PATIENT
  Age: 40 Year
  Sex: Male
  Weight: 105.01 kg

DRUGS (9)
  1. XANAX [Concomitant]
     Active Substance: ALPRAZOLAM
  2. ICLUSIG [Suspect]
     Active Substance: PONATINIB
     Indication: CHRONIC MYELOID LEUKAEMIA
     Route: 048
     Dates: start: 20140401
  3. LISINOPRIL TABLET [Concomitant]
     Active Substance: LISINOPRIL
  4. OXYCODONE TABLET [Concomitant]
  5. COMPAZINE SPANSULE (PROCHLORPERAZINE) TABLETS [Concomitant]
  6. AMBIEN (ZOLPIDEM) TABLET [Concomitant]
  7. MORPHINE TABLET [Concomitant]
  8. NYSTATIN W/ TRIAMCINOLONE [Concomitant]
  9. ASPIRIN (ACETYLSALICYLIC ACID) [Concomitant]
     Active Substance: ASPIRIN

REACTIONS (4)
  - Pain in extremity [None]
  - Nausea [None]
  - Vomiting [None]
  - Fatigue [None]

NARRATIVE: CASE EVENT DATE: 20140404
